FAERS Safety Report 24211226 (Version 1)
Quarter: 2024Q3

REPORT INFORMATION
  Report Type: Spontaneous
  Country: GB (occurrence: GB)
  Receive Date: 20240814
  Receipt Date: 20240814
  Transmission Date: 20241016
  Serious: Yes (Hospitalization, Other)
  Sender: ORGANON
  Company Number: None

PATIENT
  Age: 22 Year

DRUGS (4)
  1. ELOCON [Suspect]
     Active Substance: MOMETASONE FUROATE
     Dosage: UNK
  2. HYDROCORTISONE [Suspect]
     Active Substance: HYDROCORTISONE\HYDROCORTISONE ACETATE
     Dosage: UNK
  3. BETNOVATE [Suspect]
     Active Substance: BETAMETHASONE
     Dosage: UNK
  4. CLOBETASOL [Suspect]
     Active Substance: CLOBETASOL
     Dosage: UNK

REACTIONS (1)
  - Topical steroid withdrawal reaction [Not Recovered/Not Resolved]
